FAERS Safety Report 19084850 (Version 1)
Quarter: 2021Q2

REPORT INFORMATION
  Report Type: Spontaneous
  Country: US (occurrence: US)
  Receive Date: 20210401
  Receipt Date: 20210401
  Transmission Date: 20210717
  Serious: No
  Sender: FDA-Public Use
  Company Number: NVSC2021US070012

PATIENT
  Sex: Female

DRUGS (1)
  1. RECLAST [Suspect]
     Active Substance: ZOLEDRONIC ACID
     Indication: PRODUCT USED FOR UNKNOWN INDICATION
     Dosage: UNK
     Route: 065

REACTIONS (12)
  - Pyrexia [Unknown]
  - Toothache [Unknown]
  - Dysphagia [Unknown]
  - Polydipsia [Unknown]
  - Influenza like illness [Unknown]
  - Musculoskeletal stiffness [Unknown]
  - Pollakiuria [Unknown]
  - Chills [Unknown]
  - Feeling abnormal [Unknown]
  - Peripheral swelling [Unknown]
  - Urinary tract infection [Unknown]
  - Pain in jaw [Unknown]
